FAERS Safety Report 24618543 (Version 3)
Quarter: 2025Q3

REPORT INFORMATION
  Report Type: Spontaneous
  Country: JP (occurrence: JP)
  Receive Date: 20241114
  Receipt Date: 20250801
  Transmission Date: 20251020
  Serious: Yes (Hospitalization)
  Sender: MYLAN
  Company Number: JP-VIATRISJAPAN-2024M1100466AA

PATIENT
  Age: 77 Year
  Sex: Male

DRUGS (8)
  1. NORVASC [Suspect]
     Active Substance: AMLODIPINE BESYLATE
     Indication: Chronic kidney disease
     Dosage: 10 MILLIGRAM, QD
  2. CARDENALIN [Suspect]
     Active Substance: DOXAZOSIN MESYLATE
     Indication: Chronic kidney disease
     Dosage: 4 MILLIGRAM, QD
  3. IMIDAPRIL HYDROCHLORIDE [Suspect]
     Active Substance: IMIDAPRIL HYDROCHLORIDE
     Indication: Chronic kidney disease
     Dosage: 5 MILLIGRAM, QD
  4. FUROSEMIDE [Suspect]
     Active Substance: FUROSEMIDE
     Indication: Chronic kidney disease
     Dosage: 160 MILLIGRAM, QD
  5. BISOPROLOL FUMARATE [Suspect]
     Active Substance: BISOPROLOL FUMARATE
     Indication: Chronic kidney disease
     Dosage: 0.625 MILLIGRAM, QD
  6. VILDAGLIPTIN [Suspect]
     Active Substance: VILDAGLIPTIN
     Indication: Chronic kidney disease
     Dosage: 50 MILLIGRAM, QD
  7. FEBUXOSTAT [Suspect]
     Active Substance: FEBUXOSTAT
     Indication: Product used for unknown indication
     Dosage: 40 MILLIGRAM, QD
  8. DAYVIGO [Suspect]
     Active Substance: LEMBOREXANT
     Indication: Product used for unknown indication
     Dosage: 5 MILLIGRAM, QD

REACTIONS (1)
  - BRASH syndrome [Recovering/Resolving]
